FAERS Safety Report 21395373 (Version 7)
Quarter: 2023Q2

REPORT INFORMATION
  Report Type: Report from Study
  Country: JP (occurrence: JP)
  Receive Date: 20220930
  Receipt Date: 20230614
  Transmission Date: 20230722
  Serious: Yes (Hospitalization, Other)
  Sender: FDA-Public Use
  Company Number: JP-ASTELLAS-2022JP014450

PATIENT
  Age: 54 Year
  Sex: Male

DRUGS (26)
  1. GILTERITINIB [Suspect]
     Active Substance: GILTERITINIB
     Indication: Acute myeloid leukaemia
     Route: 065
     Dates: start: 20201229
  2. GILTERITINIB [Suspect]
     Active Substance: GILTERITINIB
     Route: 065
     Dates: start: 20210413
  3. IDARUBICIN [Suspect]
     Active Substance: IDARUBICIN
     Indication: Acute myeloid leukaemia
     Dosage: REMISSION INDUCTION THERAPY: 12 MG/M2, ONCE DAILY, DAY 1 TO DAY 3
     Route: 065
     Dates: start: 20201222, end: 20201224
  4. CYTARABINE [Suspect]
     Active Substance: CYTARABINE
     Indication: Acute myeloid leukaemia
     Dosage: REMISSION INDUCTION THERAPY: 100 MG/M2, ONCE DAILY, DAY 1 TO DAY 7
     Route: 065
     Dates: start: 20201222, end: 20201229
  5. CYTARABINE [Suspect]
     Active Substance: CYTARABINE
     Dosage: CONSOLIDATION THERAPY: 1.5 G/M2, TWICE DAILY ON DAY 1, 3, 5
     Route: 042
     Dates: start: 20210202, end: 20210206
  6. CYTARABINE [Suspect]
     Active Substance: CYTARABINE
     Dosage: CONSOLIDATION THERAPY: 1.5 G/M2, TWICE DAILY ON DAY 1, 3, 5
     Route: 042
     Dates: start: 20210302, end: 20210306
  7. URSODIOL [Concomitant]
     Active Substance: URSODIOL
     Indication: Hepatic steatosis
     Route: 048
  8. PETROLATUM [Concomitant]
     Active Substance: PETROLATUM
     Indication: Furuncle
     Dosage: ADEQUATE DOSE, SEVERAL TIMES PER DAY
     Route: 050
  9. VEMLIDY [Concomitant]
     Active Substance: TENOFOVIR ALAFENAMIDE FUMARATE
     Indication: Hepatitis B
     Route: 048
     Dates: start: 20201226
  10. GLYCOSAMINOGLYCANS [Concomitant]
     Active Substance: GLYCOSAMINOGLYCANS
     Indication: Graft versus host disease
     Dosage: ADEQUATE DOSE, SEVERAL TIMES PER DAY
     Route: 050
     Dates: start: 20201228
  11. VOALLA [Concomitant]
     Indication: Rash
     Dosage: ADEQUATE DOSE, SEVERAL TIMES PER DAY
     Route: 050
     Dates: start: 20201228
  12. RABEPRAZOLE SODIUM [Concomitant]
     Active Substance: RABEPRAZOLE SODIUM
     Indication: Gastritis prophylaxis
     Route: 048
     Dates: start: 20210107
  13. AMLODIPINE [Concomitant]
     Active Substance: AMLODIPINE BESYLATE
     Indication: Hypertension
     Route: 048
     Dates: start: 20210116
  14. TELMISARTAN [Concomitant]
     Active Substance: TELMISARTAN
     Indication: Hypertension
     Route: 048
     Dates: start: 20210116
  15. SULFAMETHOXAZOLE\TRIMETHOPRIM [Concomitant]
     Active Substance: SULFAMETHOXAZOLE\TRIMETHOPRIM
     Indication: Infection prophylaxis
     Dosage: 0.5 DF, ONCE DAILY
     Route: 048
     Dates: start: 20210226
  16. PROGRAF [Concomitant]
     Active Substance: TACROLIMUS
     Indication: Prophylaxis
     Dosage: 0.1 MG, TWICE DAILY
     Route: 048
     Dates: start: 20220121
  17. FELBINAC [Concomitant]
     Active Substance: FELBINAC
     Indication: Back pain
     Dosage: ADEQUATE DOSE, ONCE DAILY
     Route: 050
     Dates: start: 20220204
  18. MIYA-BM [Concomitant]
     Active Substance: CLOSTRIDIUM BUTYRICUM SPORES STRAIN M-55
     Indication: Prophylaxis against diarrhoea
     Route: 048
     Dates: start: 20220404
  19. ZOVIRAX [Concomitant]
     Active Substance: ACYCLOVIR
     Indication: Infection prophylaxis
     Dosage: 200 UNK, ONCE DAILY
     Route: 048
     Dates: start: 20220404
  20. VFEND [Concomitant]
     Active Substance: VORICONAZOLE
     Indication: Infection prophylaxis
     Route: 048
     Dates: start: 20220516
  21. FUROSEMIDE [Concomitant]
     Active Substance: FUROSEMIDE
     Indication: Graft versus host disease
     Route: 048
     Dates: start: 20220516
  22. FEBUXOSTAT [Concomitant]
     Active Substance: FEBUXOSTAT
     Indication: Hyperuricaemia
     Route: 048
     Dates: start: 20220712
  23. PREDNISOLONE [Concomitant]
     Active Substance: PREDNISOLONE
     Indication: Graft versus host disease
     Route: 048
     Dates: start: 20220815
  24. AMPICILLIN SODIUM\SULBACTAM SODIUM [Concomitant]
     Active Substance: AMPICILLIN SODIUM\SULBACTAM SODIUM
     Indication: COVID-19 pneumonia
     Route: 065
     Dates: start: 20220926, end: 20221005
  25. VEKLURY [Concomitant]
     Active Substance: REMDESIVIR
     Indication: COVID-19 pneumonia
     Route: 065
     Dates: start: 20220926, end: 20221005
  26. DECADRON [Concomitant]
     Active Substance: DEXAMETHASONE
     Indication: COVID-19 pneumonia
     Dosage: 6 MG/DAY, UNKNOWN FREQ.
     Route: 065
     Dates: start: 20220926, end: 20221005

REACTIONS (3)
  - COVID-19 pneumonia [Recovered/Resolved]
  - Steroid diabetes [Unknown]
  - Pneumonia [Not Recovered/Not Resolved]

NARRATIVE: CASE EVENT DATE: 20220926
